FAERS Safety Report 4650627-7 (Version None)
Quarter: 2005Q2

REPORT INFORMATION
  Report Type: 
  Country: None (occurrence: None)
  Receive Date: 20050429
  Receipt Date: 20050418
  Transmission Date: 20051028
  Serious: Yes (Hospitalization, Other)
  Sender: FDA-Public Use
  Company Number: 2005061404

PATIENT
  Age: 77 Year
  Sex: Female
  Weight: 81.6475 kg

DRUGS (9)
  1. BEXTRA [Suspect]
     Indication: ARTHRITIS
     Dosage: 10 MG (10 MG, 1 IN 1 D), ORAL
     Route: 048
     Dates: start: 20040401, end: 20050408
  2. MOXIFLOXACIN HCL [Suspect]
     Indication: INFLUENZA
     Dates: start: 20050408
  3. MOXIFLOXACIN HCL [Suspect]
     Indication: LUNG DISORDER
     Dates: start: 20050408
  4. MOXIFLOXACIN HCL [Suspect]
     Indication: OBSTRUCTIVE AIRWAYS DISORDER
     Dates: start: 20050408
  5. MOXIFLOXACIN HCL [Suspect]
     Indication: PNEUMONIA
     Dates: start: 20050408
  6. DILTIAZEM [Concomitant]
  7. HYZAAR [Concomitant]
  8. MONTELUKAST SODIUM (MONTELUKAST SODIUM) [Concomitant]
  9. FUROSEMIDE [Concomitant]

REACTIONS (16)
  - BLOOD PRESSURE SYSTOLIC DECREASED [None]
  - BRAIN HYPOXIA [None]
  - CHEST PAIN [None]
  - DIABETES MELLITUS [None]
  - DYSPEPSIA [None]
  - DYSPNOEA [None]
  - FEELING ABNORMAL [None]
  - HAEMATEMESIS [None]
  - HEART RATE INCREASED [None]
  - HEART RATE IRREGULAR [None]
  - HYPERHIDROSIS [None]
  - INCOHERENT [None]
  - INFLUENZA [None]
  - LIFE SUPPORT [None]
  - LUNG DISORDER [None]
  - PNEUMONIA [None]
